FAERS Safety Report 23908468 (Version 2)
Quarter: 2024Q2

REPORT INFORMATION
  Report Type: Report from Study
  Country: US (occurrence: US)
  Receive Date: 20240528
  Receipt Date: 20240604
  Transmission Date: 20240716
  Serious: No
  Sender: FDA-Public Use
  Company Number: US-ELI_LILLY_AND_COMPANY-US202405015275

PATIENT
  Age: 36 Year
  Sex: Female

DRUGS (4)
  1. TIRZEPATIDE [Suspect]
     Active Substance: TIRZEPATIDE
     Indication: Polycystic ovarian syndrome
     Dosage: 2.5 MG, UNKNOWN
     Route: 058
     Dates: start: 202404
  2. TIRZEPATIDE [Suspect]
     Active Substance: TIRZEPATIDE
     Indication: Insulin resistance
     Dosage: 5 MG, UNKNOWN
     Route: 058
     Dates: start: 20240521, end: 20240521
  3. TIRZEPATIDE [Suspect]
     Active Substance: TIRZEPATIDE
     Dosage: 2.5 MG, UNKNOWN
     Route: 058
  4. LEVOXYL [Concomitant]
     Active Substance: LEVOTHYROXINE SODIUM
     Indication: Product used for unknown indication

REACTIONS (6)
  - Blood pressure increased [Unknown]
  - Off label use [Unknown]
  - Dizziness [Recovering/Resolving]
  - Dehydration [Recovered/Resolved]
  - Lethargy [Recovering/Resolving]
  - Vomiting [Recovered/Resolved]

NARRATIVE: CASE EVENT DATE: 20240401
